FAERS Safety Report 9039397 (Version 1)
Quarter: 2013Q1

REPORT INFORMATION
  Report Type: Spontaneous
  Country: US (occurrence: US)
  Receive Date: 20130129
  Receipt Date: 20130129
  Transmission Date: 20140127
  Serious: Yes (Hospitalization, Other)
  Sender: FDA-Public Use
  Company Number: US-009507513-1301USA003744

PATIENT
  Age: 36 Year
  Sex: Male

DRUGS (3)
  1. MONTELUKAST SODIUM [Suspect]
     Route: 048
  2. EXACYL [Suspect]
     Route: 048
  3. TOPALGIC [Suspect]
     Route: 048

REACTIONS (4)
  - Suicide attempt [Unknown]
  - Hypoglycaemia [Unknown]
  - Drug interaction [Unknown]
  - Convulsion [Unknown]
